FAERS Safety Report 18859273 (Version 1)
Quarter: 2021Q1

REPORT INFORMATION
  Report Type: Spontaneous
  Country: US (occurrence: US)
  Receive Date: 20210207
  Receipt Date: 20210207
  Transmission Date: 20210420
  Serious: No
  Sender: FDA-Public Use
  Company Number: None

PATIENT
  Age: 55 Year
  Sex: Female
  Weight: 104.78 kg

DRUGS (2)
  1. GUAIFENESIN (GUAIFENESIN 600MG TAB, SA) [Suspect]
     Active Substance: GUAIFENESIN
     Indication: COUGH
     Route: 048
     Dates: start: 20201123, end: 20201123
  2. REMDESIVIR  (REMDESIVIR (EUA)) [Suspect]
     Active Substance: REMDESIVIR
     Indication: COVID-19
     Dosage: ?          OTHER ROUTE:IV?
     Dates: start: 20201123, end: 20201123

REACTIONS (2)
  - Pruritus [None]
  - Rash [None]

NARRATIVE: CASE EVENT DATE: 20201123
